FAERS Safety Report 7209337-4 (Version None)
Quarter: 2011Q1

REPORT INFORMATION
  Report Type: 
  Country: None (occurrence: None)
  Receive Date: 20110104
  Receipt Date: 20101228
  Transmission Date: 20110831
  Serious: Yes (Other)
  Sender: FDA-Public Use
  Company Number: US-B.I. PHARMACEUTICALS,INC./RIDGEFIELD-2010-BP-15281BP

PATIENT
  Sex: Female

DRUGS (10)
  1. PRADAXA [Suspect]
     Indication: ATRIAL FIBRILLATION
     Dosage: 300 MG
     Route: 048
     Dates: start: 20101101
  2. HYDROCHLOROTHIAZIDE [Concomitant]
     Dates: start: 20101101
  3. ULTRAM [Concomitant]
     Indication: HERPES ZOSTER
  4. COREG [Concomitant]
     Dates: start: 20101101
  5. VALTURNA [Concomitant]
     Dates: start: 20101001
  6. ULTRAM [Concomitant]
     Indication: PAIN
  7. HYDRALAZINE [Concomitant]
  8. RESTORIL [Concomitant]
     Indication: INSOMNIA
  9. AMIODARONE [Concomitant]
     Dates: start: 20101101
  10. CLONIDINE [Concomitant]
     Indication: HYPERTENSION

REACTIONS (6)
  - ABDOMINAL PAIN [None]
  - OEDEMA PERIPHERAL [None]
  - HEART RATE IRREGULAR [None]
  - DYSPEPSIA [None]
  - HEART RATE DECREASED [None]
  - BLOOD PRESSURE DECREASED [None]
